FAERS Safety Report 4416579-X (Version None)
Quarter: 2004Q2

REPORT INFORMATION
  Report Type: 
  Country: None (occurrence: None)
  Receive Date: 20040630
  Receipt Date: 20040505
  Transmission Date: 20050107
  Serious: Yes (Hospitalization)
  Sender: FDA-Public Use
  Company Number: 04P-163-0259682-00

PATIENT
  Age: 48 Year
  Sex: Female
  Weight: 106.5953 kg

DRUGS (10)
  1. HUMIRA [Suspect]
     Indication: RHEUMATOID ARTHRITIS
     Dosage: 40 MG, 1 IN 2 WK, SUBCUTANEOUS
     Route: 058
     Dates: start: 20030401
  2. HUMIRA [Suspect]
     Indication: RHEUMATOID ARTHRITIS
     Dosage: 40 MG, 1 IN 2 WK, SUBCUTANEOUS
     Route: 058
     Dates: start: 20040501
  3. LEXAPRO [Concomitant]
  4. ESOMEPRAZOLE [Concomitant]
  5. MONTELUKAST SODIUM [Concomitant]
  6. SERETIDE MITE [Concomitant]
  7. UNSPECIFIED BRONCHODILATOR [Concomitant]
  8. SULFASALAZINE [Concomitant]
  9. PROPACET 100 [Concomitant]
  10. CARISOPRODOL [Concomitant]

REACTIONS (4)
  - C-REACTIVE PROTEIN INCREASED [None]
  - FALL [None]
  - INJECTION SITE BURNING [None]
  - ROTATOR CUFF SYNDROME [None]
